FAERS Safety Report 5680888-7 (Version None)
Quarter: 2008Q1

REPORT INFORMATION
  Report Type: 
  Country: None (occurrence: None)
  Receive Date: 20080326
  Receipt Date: 20080214
  Transmission Date: 20080703
  Serious: Yes (Other)
  Sender: FDA-Public Use
  Company Number: FR-PFIZER INC-2008025694

PATIENT
  Sex: Female

DRUGS (1)
  1. CYTOTEC [Suspect]
     Dates: start: 20080121, end: 20080125

REACTIONS (2)
  - ABORTION [None]
  - OFF LABEL USE [None]
